FAERS Safety Report 25263393 (Version 2)
Quarter: 2025Q2

REPORT INFORMATION
  Report Type: Spontaneous
  Country: US (occurrence: US)
  Receive Date: 20250502
  Receipt Date: 20250519
  Transmission Date: 20250717
  Serious: No
  Sender: ABBVIE
  Company Number: US-ABBVIE-6252869

PATIENT
  Age: 65 Year
  Sex: Female
  Weight: 63.502 kg

DRUGS (1)
  1. SYNTHROID [Suspect]
     Active Substance: LEVOTHYROXINE SODIUM
     Indication: Hypothyroidism
     Dosage: FORM STRENGTH: 100 MICROGRAM
     Route: 048

REACTIONS (1)
  - Coeliac disease [Recovering/Resolving]

NARRATIVE: CASE EVENT DATE: 20250101
